FAERS Safety Report 4847112-6 (Version None)
Quarter: 2005Q4

REPORT INFORMATION
  Report Type: 
  Country: None (occurrence: None)
  Receive Date: 20051202
  Receipt Date: 20051118
  Transmission Date: 20060501
  Serious: Yes (Other)
  Sender: FDA-Public Use
  Company Number: 28029

PATIENT
  Age: 53 Year
  Sex: Male

DRUGS (1)
  1. ALDARA [Suspect]
     Indication: CONDYLOMA ACUMINATUM
     Dosage: 1 DF, 3 TIMES WEEKLY (1 DOSAGE FORMS, 3 IN 1 WEEK(S))
     Route: 061
     Dates: start: 20050712, end: 20050930

REACTIONS (4)
  - APPLICATION SITE ERYTHEMA [None]
  - APPLICATION SITE ULCER [None]
  - BALANITIS [None]
  - LICHEN PLANUS [None]
